FAERS Safety Report 18223197 (Version 1)
Quarter: 2020Q3

REPORT INFORMATION
  Report Type: Report from Study
  Country: LK (occurrence: LK)
  Receive Date: 20200902
  Receipt Date: 20200902
  Transmission Date: 20201103
  Serious: Yes (Hospitalization, Other)
  Sender: FDA-Public Use
  Company Number: LK-GLAXOSMITHKLINE-LK2020GSK176516

PATIENT
  Age: 6 Year
  Sex: Female

DRUGS (1)
  1. SALBUTAMOL SULPHATE [Suspect]
     Active Substance: ALBUTEROL SULFATE
     Dosage: UNK

REACTIONS (4)
  - Product storage error [Unknown]
  - Toxicity to various agents [Unknown]
  - Accidental poisoning [Unknown]
  - Accidental exposure to product [Unknown]
